FAERS Safety Report 24805983 (Version 1)
Quarter: 2025Q1

REPORT INFORMATION
  Report Type: Spontaneous
  Country: PL (occurrence: PL)
  Receive Date: 20250103
  Receipt Date: 20250103
  Transmission Date: 20250408
  Serious: Yes (Other)
  Sender: PFIZER
  Company Number: PL-UCBSA-2024065585

PATIENT
  Age: 2 Year
  Sex: Female

DRUGS (9)
  1. SIROLIMUS [Suspect]
     Active Substance: SIROLIMUS
     Indication: Seizure
  2. VIMPAT [Suspect]
     Active Substance: LACOSAMIDE
     Indication: Seizure
  3. BRIVIACT [Suspect]
     Active Substance: BRIVARACETAM
     Indication: Seizure
  4. KEPPRA [Suspect]
     Active Substance: LEVETIRACETAM
     Indication: Seizure
  5. FENFLURAMINE HYDROCHLORIDE [Suspect]
     Active Substance: FENFLURAMINE HYDROCHLORIDE
     Indication: Seizure
  6. PHENYTOIN [Suspect]
     Active Substance: PHENYTOIN
     Indication: Seizure
  7. TOPIRAMATE [Suspect]
     Active Substance: TOPIRAMATE
     Indication: Seizure
  8. VALPROIC ACID [Suspect]
     Active Substance: VALPROIC ACID
     Indication: Seizure
  9. OXYCODONE [Suspect]
     Active Substance: OXYCODONE
     Indication: Seizure

REACTIONS (5)
  - Seizure [Unknown]
  - Lennox-Gastaut syndrome [Unknown]
  - Drug ineffective [Unknown]
  - Fall [Unknown]
  - Off label use [Unknown]
